FAERS Safety Report 5043087-8 (Version None)
Quarter: 2006Q3

REPORT INFORMATION
  Report Type: 
  Country: None (occurrence: None)
  Receive Date: 20060705
  Receipt Date: 20060623
  Transmission Date: 20061208
  Serious: Yes (Other)
  Sender: FDA-Public Use
  Company Number: DE-NOVOPROD-254358

PATIENT
  Age: 53 Year
  Sex: Male
  Weight: 70 kg

DRUGS (6)
  1. LEVEMIR [Suspect]
     Indication: DIABETES MELLITUS INSULIN-DEPENDENT
     Dosage: 39 U, QD (16+23)
     Route: 058
     Dates: start: 20050801
  2. TRAMADOL HCL [Suspect]
     Dosage: 100 MG, PRN
     Route: 030
  3. DELIX [Concomitant]
     Dosage: .5 TAB, QD
     Route: 048
  4. HUMALOG                            /00030501/ [Concomitant]
     Dosage: 8-12+6+6-10
     Dates: start: 20050101
  5. SALOFALK                           /00000301/ [Concomitant]
     Dosage: 1 TAB, QD
     Route: 048
  6. PIROXICAM [Concomitant]
     Dosage: 20 MG, PRN
     Route: 048

REACTIONS (7)
  - DYSPHONIA [None]
  - HEMIPARESIS [None]
  - HEMIPLEGIA [None]
  - HYPOGLYCAEMIC SEIZURE [None]
  - PARESIS [None]
  - SPEECH DISORDER [None]
  - URINARY INCONTINENCE [None]
